FAERS Safety Report 10104337 (Version 1)
Quarter: 2014Q2

REPORT INFORMATION
  Report Type: Spontaneous
  Country: FR (occurrence: FR)
  Receive Date: 20140424
  Receipt Date: 20140424
  Transmission Date: 20141212
  Serious: Yes (Hospitalization)
  Sender: FDA-Public Use
  Company Number: FR-UCBSA-118872

PATIENT
  Age: 70 Year
  Sex: Male

DRUGS (11)
  1. KEPPRA [Suspect]
     Indication: EPILEPSY
     Dosage: UNKNOWN DOSE
     Route: 048
     Dates: start: 20140305, end: 201403
  2. PYOSTACINE [Suspect]
     Indication: COUGH
     Route: 048
     Dates: start: 20140304, end: 201403
  3. ALTEIS [Concomitant]
  4. EZETROL [Concomitant]
  5. ALLOPURINOL [Concomitant]
  6. TENORMINE [Concomitant]
  7. INIPOMP [Concomitant]
  8. DOLIPRANE [Concomitant]
  9. CORTANCYL [Concomitant]
  10. NABUCOX [Concomitant]
  11. ZYMAD [Concomitant]

REACTIONS (1)
  - Purpura [Recovering/Resolving]
